FAERS Safety Report 8338814-8 (Version None)
Quarter: 2012Q2

REPORT INFORMATION
  Report Type: 
  Country: None (occurrence: None)
  Receive Date: 20120504
  Receipt Date: 20120430
  Transmission Date: 20120825
  Serious: Yes (Disabling, Other)
  Sender: FDA-Public Use
  Company Number: GB-MERCK-1205USA00064

PATIENT
  Age: 6 Year
  Sex: Female
  Weight: 20 kg

DRUGS (3)
  1. SINGULAIR [Suspect]
     Indication: ASTHMA
     Route: 048
     Dates: end: 20120323
  2. ALBUTEROL [Concomitant]
     Indication: ASTHMA
     Route: 055
  3. BECLOMETHASONE DIPROPIONATE [Concomitant]
     Indication: ASTHMA
     Route: 055

REACTIONS (6)
  - FATIGUE [None]
  - INITIAL INSOMNIA [None]
  - SLEEP DISORDER [None]
  - TREMOR [None]
  - SOMNAMBULISM [None]
  - MIDDLE INSOMNIA [None]
